FAERS Safety Report 18422251 (Version 1)
Quarter: 2020Q4

REPORT INFORMATION
  Report Type: Spontaneous
  Country: US (occurrence: US)
  Receive Date: 20201023
  Receipt Date: 20201023
  Transmission Date: 20210114
  Serious: No
  Sender: FDA-Public Use
  Company Number: US-PFIZER INC-2020408925

PATIENT
  Age: 3 Year
  Sex: Male

DRUGS (1)
  1. PHOSPHOLINE IODIDE [Suspect]
     Active Substance: ECHOTHIOPHATE IODIDE
     Indication: STRABISMUS
     Dosage: 1 DROP IN EACH EYE 3 TIMES A WEEK

REACTIONS (1)
  - Drug effective for unapproved indication [Unknown]
